FAERS Safety Report 18655685 (Version 1)
Quarter: 2020Q4

REPORT INFORMATION
  Report Type: Spontaneous
  Country: GB (occurrence: GB)
  Receive Date: 20201223
  Receipt Date: 20201223
  Transmission Date: 20210114
  Serious: Yes (Other)
  Sender: FDA-Public Use
  Company Number: GB-009507513-2012GBR008439

PATIENT
  Age: 76 Year
  Sex: Male
  Weight: 78 kg

DRUGS (5)
  1. SINEMET [Suspect]
     Active Substance: CARBIDOPA\LEVODOPA
     Dosage: 12.5/50
     Route: 048
     Dates: start: 20201002, end: 20201013
  2. PRAMIPEXOLE. [Concomitant]
     Active Substance: PRAMIPEXOLE
     Dosage: UNK
  3. CARVEDILOL. [Concomitant]
     Active Substance: CARVEDILOL
     Dosage: UNK
  4. RASAGILINE. [Concomitant]
     Active Substance: RASAGILINE
     Dosage: UNK
  5. SINEMET CR [Suspect]
     Active Substance: CARBIDOPA\LEVODOPA
     Dosage: 12.5/50
     Route: 048
     Dates: start: 20201002, end: 20201013

REACTIONS (4)
  - Pruritus [Not Recovered/Not Resolved]
  - Dermatitis [Not Recovered/Not Resolved]
  - Dermatitis allergic [Not Recovered/Not Resolved]
  - Reaction to colouring [Not Recovered/Not Resolved]

NARRATIVE: CASE EVENT DATE: 20201007
